FAERS Safety Report 9204986 (Version 1)
Quarter: 2013Q2

REPORT INFORMATION
  Report Type: Report from Study
  Country: SE (occurrence: SE)
  Receive Date: 20130402
  Receipt Date: 20130402
  Transmission Date: 20140414
  Serious: Yes (Other)
  Sender: FDA-Public Use
  Company Number: SE-ROCHE-1208817

PATIENT
  Sex: 0

DRUGS (3)
  1. RANIBIZUMAB [Suspect]
     Indication: AGE-RELATED MACULAR DEGENERATION
     Route: 050
  2. RANIBIZUMAB [Suspect]
     Route: 050
  3. RANIBIZUMAB [Suspect]
     Route: 050

REACTIONS (1)
  - Cerebrovascular accident [Unknown]
